FAERS Safety Report 8005461-7 (Version None)
Quarter: 2011Q4

REPORT INFORMATION
  Report Type: 
  Country: None (occurrence: None)
  Receive Date: 20111223
  Receipt Date: 20111219
  Transmission Date: 20120403
  Serious: Yes (Hospitalization, Other)
  Sender: FDA-Public Use
  Company Number: US-ROCHE-1023586

PATIENT
  Sex: Female

DRUGS (3)
  1. PEGINTERFERON ALFA-2A [Suspect]
     Indication: HEPATITIS C
     Route: 058
     Dates: start: 20110909
  2. TELAPREVIR [Suspect]
     Indication: HEPATITIS C
     Dates: start: 20110909
  3. COPEGUS [Suspect]
     Indication: HEPATITIS C
     Route: 048
     Dates: start: 20110909

REACTIONS (6)
  - BLOOD POTASSIUM DECREASED [None]
  - PALPITATIONS [None]
  - RASH GENERALISED [None]
  - DYSPNOEA [None]
  - PRURITUS GENERALISED [None]
  - ANAEMIA [None]
